FAERS Safety Report 6993638-9 (Version None)
Quarter: 2010Q3

REPORT INFORMATION
  Report Type: 
  Country: None (occurrence: None)
  Receive Date: 20100917
  Receipt Date: 20100311
  Transmission Date: 20110219
  Serious: Yes (Other)
  Sender: FDA-Public Use
  Company Number: US-ASTRAZENECA-2009UW21207

PATIENT
  Sex: Female

DRUGS (8)
  1. SEROQUEL [Suspect]
     Route: 048
  2. OMEPRAZOLE [Concomitant]
     Route: 048
     Dates: start: 20070409
  3. VYTORIN [Concomitant]
     Dosage: 10/20 MG
     Route: 048
     Dates: start: 20070409
  4. METFORMIN [Concomitant]
     Route: 048
     Dates: start: 20070411
  5. MELOXICAM [Concomitant]
     Route: 048
     Dates: start: 20070926
  6. BENAZEPRIL HYDROCHLORIDE [Concomitant]
     Dosage: 20/25 MG
     Route: 048
     Dates: start: 20070310
  7. CLONIDINE HCL [Concomitant]
     Route: 048
     Dates: start: 20070926
  8. HYDROCODONE BT-IBUPROFEN [Concomitant]
     Dates: start: 20091211

REACTIONS (3)
  - DIABETES MELLITUS [None]
  - KETOACIDOSIS [None]
  - PANCREATITIS [None]
